FAERS Safety Report 8329167-X (Version None)
Quarter: 2012Q2

REPORT INFORMATION
  Report Type: 
  Country: None (occurrence: None)
  Receive Date: 20120502
  Receipt Date: 20101026
  Transmission Date: 20120825
  Serious: No
  Sender: FDA-Public Use
  Company Number: US-TEVA-2010005614

PATIENT
  Sex: Male
  Weight: 89.438 kg

DRUGS (1)
  1. NUVIGIL [Suspect]
     Indication: NARCOLEPSY
     Route: 048
     Dates: start: 20101021

REACTIONS (3)
  - PAIN IN JAW [None]
  - NAUSEA [None]
  - TOOTHACHE [None]
